FAERS Safety Report 4978250-5 (Version None)
Quarter: 2006Q2

REPORT INFORMATION
  Report Type: 
  Country: None (occurrence: None)
  Receive Date: 20060417
  Receipt Date: 20060306
  Transmission Date: 20061013
  Serious: No
  Sender: FDA-Public Use
  Company Number: 06031718

PATIENT
  Age: 7 Year
  Sex: Female

DRUGS (2)
  1. OVIDE [Suspect]
     Indication: LICE INFESTATION
     Dosage: 20Z, ONCE, TOPICAL
     Route: 061
  2. ALBUTEROL [Concomitant]

REACTIONS (1)
  - DYSPNOEA [None]
